FAERS Safety Report 7452326 (Version 3)
Quarter: 2013Q4

REPORT INFORMATION
  Report Type: Report from Study
  Country: CA (occurrence: CA)
  Receive Date: 20100702
  Receipt Date: 20131223
  Transmission Date: 20140711
  Serious: Yes (Disabling)
  Sender: FDA-Public Use
  Company Number: CA-ROCHE-652019

PATIENT
  Sex: Female
  Weight: 63.6 kg

DRUGS (5)
  1. BEVACIZUMAB [Suspect]
     Indication: BREAST CANCER
     Dosage: DOSE: 15 MG/KG, LAST DOSE PRIOR TO EVENT ON 22/APR/2009, THERAPY PERMANENTLY DISCONTINUED
     Route: 042
     Dates: start: 20091216
  2. TRASTUZUMAB [Suspect]
     Indication: BREAST CANCER
     Dosage: LOADING DOSE.
     Route: 042
  3. TRASTUZUMAB [Suspect]
     Dosage: FORM: VIAL, DOSE: 6 MG/KG, LAST DOSE PRIOR TO SAE ON 24 JUNE 2009. MAINTAINANCE DOSE.
     Route: 042
  4. DOCETAXEL [Suspect]
     Indication: BREAST CANCER
     Dosage: DOSE: 75 MG/M2, LAST DOSE PRIOR SAE: 01/APR/2009.
     Route: 042
     Dates: start: 20091216
  5. CARBOPLATIN [Suspect]
     Indication: BREAST CANCER
     Dosage: DOSE: 6 AUC, LAST DOSE PRIOR TO EVENT: 01/APR/2009
     Route: 042
     Dates: start: 20091216

REACTIONS (1)
  - Corneal perforation [Recovered/Resolved]
